FAERS Safety Report 19828009 (Version 1)
Quarter: 2021Q3

REPORT INFORMATION
  Report Type: Spontaneous
  Country: TW (occurrence: TW)
  Receive Date: 20210914
  Receipt Date: 20210914
  Transmission Date: 20211014
  Serious: Yes (Other)
  Sender: FDA-Public Use
  Company Number: NVSC2021TW203918

PATIENT
  Age: 44 Year
  Sex: Male
  Weight: 60 kg

DRUGS (2)
  1. JADENU [Suspect]
     Active Substance: DEFERASIROX
     Indication: HAEMOCHROMATOSIS
     Dosage: 3 DF, QD (1080 MG)
     Route: 048
     Dates: start: 20210528, end: 20210608
  2. JADENU [Suspect]
     Active Substance: DEFERASIROX
     Dosage: 1 DF
     Route: 048
     Dates: start: 20210705, end: 20210719

REACTIONS (2)
  - Blood iron increased [Unknown]
  - Acute kidney injury [Recovered/Resolved]

NARRATIVE: CASE EVENT DATE: 20210608
